FAERS Safety Report 19433012 (Version 1)
Quarter: 2021Q2

REPORT INFORMATION
  Report Type: Spontaneous
  Country: CN (occurrence: CN)
  Receive Date: 20210617
  Receipt Date: 20210617
  Transmission Date: 20210717
  Serious: Yes (Hospitalization)
  Sender: FDA-Public Use
  Company Number: CN-BAYER-2021-159690

PATIENT
  Age: 76 Year
  Sex: Male
  Weight: 41.5 kg

DRUGS (1)
  1. STIVARGA [Suspect]
     Active Substance: REGORAFENIB
     Indication: HEPATIC CANCER
     Dosage: 160 MG, QD
     Route: 048
     Dates: start: 20200829, end: 20210602

REACTIONS (7)
  - Rash vesicular [Recovering/Resolving]
  - Hypertensive heart disease [None]
  - Skin weeping [Recovering/Resolving]
  - Rash [Recovering/Resolving]
  - Hepatocellular carcinoma [None]
  - Drug eruption [Recovering/Resolving]
  - Tumour embolism [None]

NARRATIVE: CASE EVENT DATE: 20210602
